FAERS Safety Report 8837950 (Version 4)
Quarter: 2014Q2

REPORT INFORMATION
  Report Type: Report from Study
  Country: AU (occurrence: AU)
  Receive Date: 20121012
  Receipt Date: 20140610
  Transmission Date: 20141212
  Serious: Yes (Disabling, Other)
  Sender: FDA-Public Use
  Company Number: AU-ROCHE-1142130

PATIENT
  Age: 84 Year
  Sex: Male

DRUGS (14)
  1. METHOXY POLYETHYLENE GLYCOL-EPOETIN BETA [Suspect]
     Indication: NEPHROGENIC ANAEMIA
     Route: 058
     Dates: start: 20111022, end: 20120307
  2. METHOXY POLYETHYLENE GLYCOL-EPOETIN BETA [Suspect]
     Route: 058
     Dates: start: 20111022, end: 20120518
  3. CEFTRIAXONE [Suspect]
     Indication: PRODUCT USED FOR UNKNOWN INDICATION
     Route: 065
  4. RISEDRONATE [Concomitant]
     Route: 065
  5. FENTANYL PATCH [Concomitant]
     Route: 065
  6. BUMETANIDE [Concomitant]
     Route: 065
  7. ASPIRIN [Concomitant]
     Route: 065
  8. SYMBICORT [Concomitant]
  9. OMEPRAZOLE [Concomitant]
     Route: 065
  10. MAGNESIUM ASPARTATE [Concomitant]
     Route: 065
  11. PREDNISOLON [Concomitant]
     Indication: RHEUMATOID ARTHRITIS
     Route: 065
  12. CALCIUM CARBONATE [Concomitant]
  13. DERMEZE [Concomitant]
  14. OXYCODONE [Concomitant]
     Route: 065

REACTIONS (3)
  - Deep vein thrombosis [Unknown]
  - Drug hypersensitivity [Unknown]
  - Spinal compression fracture [Unknown]
